FAERS Safety Report 8774915 (Version 1)
Quarter: 2012Q4

REPORT INFORMATION
  Report Type: Report from Study
  Country: CA (occurrence: CA)
  Receive Date: 20120910
  Receipt Date: 20120910
  Transmission Date: 20130627
  Serious: Yes (Other)
  Sender: FDA-Public Use
  Company Number: CA-JNJFOC-20120815140

PATIENT
  Sex: Female
  Weight: 84 kg

DRUGS (8)
  1. REMICADE [Suspect]
     Indication: CROHN^S DISEASE
     Route: 042
     Dates: start: 20111118
  2. METHOTREXATE [Concomitant]
     Route: 065
  3. GABAPENTIN [Concomitant]
     Route: 065
  4. ADALAT [Concomitant]
     Route: 065
  5. SINEMET [Concomitant]
     Route: 065
  6. SYMBICORT [Concomitant]
     Route: 065
  7. VITAMIN B12 [Concomitant]
     Route: 065
  8. DEMEROL [Concomitant]
     Route: 065

REACTIONS (1)
  - Carpal tunnel syndrome [Recovered/Resolved]
